FAERS Safety Report 8166446-3 (Version None)
Quarter: 2012Q1

REPORT INFORMATION
  Report Type: 
  Country: None (occurrence: None)
  Receive Date: 20120227
  Receipt Date: 20110809
  Transmission Date: 20120608
  Serious: Yes (Other)
  Sender: FDA-Public Use
  Company Number: US-MYLANLABS-2011S1016573

PATIENT
  Age: 16 Year
  Sex: Male

DRUGS (2)
  1. ALLEGRA [Concomitant]
     Indication: MULTIPLE ALLERGIES
  2. AMNESTEEM [Suspect]
     Indication: ACNE
     Route: 048
     Dates: start: 20110601, end: 20110718

REACTIONS (1)
  - WHITE BLOOD CELL COUNT DECREASED [None]
